FAERS Safety Report 7094010-6 (Version None)
Quarter: 2010Q4

REPORT INFORMATION
  Report Type: 
  Country: None (occurrence: None)
  Receive Date: 20101110
  Receipt Date: 20101102
  Transmission Date: 20110411
  Serious: Yes (Other)
  Sender: FDA-Public Use
  Company Number: TR-ELI_LILLY_AND_COMPANY-TR201011000769

PATIENT

DRUGS (4)
  1. HUMALOG [Suspect]
     Indication: TYPE 1 DIABETES MELLITUS
     Dosage: 16 U, 3/D
     Route: 064
     Dates: start: 20030101
  2. HUMULIN N [Suspect]
     Indication: TYPE 1 DIABETES MELLITUS
     Dosage: 12 U, DAILY (1/D)
     Route: 064
     Dates: start: 20050101
  3. IRON [Concomitant]
     Indication: SUPPLEMENTATION THERAPY
     Route: 064
  4. VITAMINS [Concomitant]
     Indication: SUPPLEMENTATION THERAPY
     Route: 064

REACTIONS (3)
  - DRUG EXPOSURE DURING PREGNANCY [None]
  - HYPOGLYCAEMIA NEONATAL [None]
  - JAUNDICE NEONATAL [None]
